FAERS Safety Report 13705730 (Version 1)
Quarter: 2017Q2

REPORT INFORMATION
  Report Type: Report from Study
  Country: US (occurrence: US)
  Receive Date: 20170630
  Receipt Date: 20170630
  Transmission Date: 20170830
  Serious: Yes (Other)
  Sender: FDA-Public Use
  Company Number: US-JNJFOC-20170627628

PATIENT
  Sex: Female

DRUGS (7)
  1. IMBRUVICA [Suspect]
     Active Substance: IBRUTINIB
     Indication: CHRONIC LYMPHOCYTIC LEUKAEMIA
     Route: 048
     Dates: start: 20170415
  2. AMBIEN [Concomitant]
     Active Substance: ZOLPIDEM TARTRATE
  3. VFEND [Concomitant]
     Active Substance: VORICONAZOLE
  4. VALACYCLOVIR [Concomitant]
     Active Substance: VALACYCLOVIR HYDROCHLORIDE
  5. MEFENAMIC ACID. [Concomitant]
     Active Substance: MEFENAMIC ACID
  6. DOCUSATE [Concomitant]
     Active Substance: DOCUSATE
  7. SENOKOT [Concomitant]
     Active Substance: SENNOSIDES

REACTIONS (1)
  - Uterine leiomyoma [Unknown]
